FAERS Safety Report 7916815-9 (Version None)
Quarter: 2011Q4

REPORT INFORMATION
  Report Type: 
  Country: None (occurrence: None)
  Receive Date: 20111116
  Receipt Date: 20111101
  Transmission Date: 20120403
  Serious: No
  Sender: FDA-Public Use
  Company Number: US-B.I. PHARMACEUTICALS,INC./RIDGEFIELD-2011-BP-25492BP

PATIENT
  Sex: Male

DRUGS (8)
  1. ALPRAZOLAM [Concomitant]
     Indication: ANXIETY
     Route: 048
  2. METFORMIN HCL [Concomitant]
     Indication: DIABETES MELLITUS
     Dosage: 2000 MG
     Route: 048
  3. AZILECT [Concomitant]
     Indication: PARKINSON'S DISEASE
     Dosage: 1 MG
     Route: 048
  4. LANTUS [Concomitant]
     Indication: DIABETES MELLITUS
     Route: 058
  5. MIRAPEX [Suspect]
     Indication: PARKINSON'S DISEASE
     Dosage: 4.5 MG
     Route: 048
     Dates: start: 20110501
  6. AMANTADINE HCL [Concomitant]
     Indication: PARKINSON'S DISEASE
     Dosage: 200 MG
     Route: 048
  7. JANUVIA [Concomitant]
     Indication: DIABETES MELLITUS
     Dosage: 100 MG
     Route: 048
  8. CARBALEVADOPA [Concomitant]
     Indication: PARKINSON'S DISEASE
     Route: 048

REACTIONS (7)
  - FATIGUE [None]
  - THINKING ABNORMAL [None]
  - CONSTIPATION [None]
  - URINARY TRACT INFECTION [None]
  - ASTHENIA [None]
  - MIDDLE INSOMNIA [None]
  - HYPERSEXUALITY [None]
